FAERS Safety Report 11404021 (Version 1)
Quarter: 2015Q3

REPORT INFORMATION
  Report Type: Spontaneous
  Country: US (occurrence: None)
  Receive Date: 20150820
  Receipt Date: 20150820
  Transmission Date: 20151125
  Serious: No
  Sender: FDA-Public Use
  Company Number: None

PATIENT
  Age: 57 Year
  Sex: Female

DRUGS (7)
  1. CALCIUM [Concomitant]
     Active Substance: CALCIUM
  2. IBRANCE [Suspect]
     Active Substance: PALBOCICLIB
     Indication: BREAST CANCER
     Dosage: 125MG QD FOR 21DS ORAL
     Route: 048
     Dates: start: 20150526
  3. FROVA [Concomitant]
     Active Substance: FROVATRIPTAN SUCCINATE
  4. NORTRIPTYLIN [Concomitant]
     Active Substance: NORTRIPTYLINE
  5. CEPHALEXIN. [Concomitant]
     Active Substance: CEPHALEXIN
  6. SELENIUM [Concomitant]
     Active Substance: SELENIUM
  7. SULFAMETHOX [Concomitant]

REACTIONS (2)
  - Dyspnoea exertional [None]
  - Nausea [None]

NARRATIVE: CASE EVENT DATE: 20150701
